FAERS Safety Report 6157804-7 (Version None)
Quarter: 2009Q2

REPORT INFORMATION
  Report Type: 
  Country: None (occurrence: None)
  Receive Date: 20090414
  Receipt Date: 20090408
  Transmission Date: 20091009
  Serious: Yes (Death, Hospitalization)
  Sender: FDA-Public Use
  Company Number: US025613

PATIENT
  Age: 70 Year
  Sex: Male

DRUGS (1)
  1. TREANDA [Suspect]
     Indication: CHRONIC LYMPHOCYTIC LEUKAEMIA
     Dosage: CYCLICAL, INTRAVENOUS
     Route: 042
     Dates: start: 20081215

REACTIONS (3)
  - ACUTE RESPIRATORY FAILURE [None]
  - CARDIOVASCULAR DISORDER [None]
  - DISEASE COMPLICATION [None]
